FAERS Safety Report 9216140 (Version 3)
Quarter: 2013Q2

REPORT INFORMATION
  Report Type: Report from Study
  Country: JP (occurrence: JP)
  Receive Date: 20130408
  Receipt Date: 20130626
  Transmission Date: 20140414
  Serious: Yes (Hospitalization)
  Sender: FDA-Public Use
  Company Number: JP-AMGEN-JPNCT2013023690

PATIENT
  Age: 67 Year
  Sex: Male
  Weight: 56 kg

DRUGS (10)
  1. DARBEPOETIN ALFA [Suspect]
     Indication: NEPHROGENIC ANAEMIA
     Dosage: 30 MUG, QD
     Route: 040
     Dates: start: 20110726, end: 20110726
  2. DARBEPOETIN ALFA [Suspect]
     Dosage: 30 MUG, QD
     Route: 040
     Dates: start: 20110908, end: 20110908
  3. DARBEPOETIN ALFA [Suspect]
     Dosage: 60 MUG, QD
     Route: 040
     Dates: start: 20111027, end: 20111027
  4. DARBEPOETIN ALFA [Suspect]
     Dosage: 60 MUG, QD
     Route: 040
     Dates: start: 20111215, end: 20111215
  5. DARBEPOETIN ALFA [Suspect]
     Dosage: 60 MUG, QD
     Route: 040
     Dates: start: 20120209, end: 20120209
  6. DARBEPOETIN ALFA [Suspect]
     Dosage: 80 MUG, QD
     Route: 040
     Dates: start: 20120410, end: 20120410
  7. DARBEPOETIN ALFA [Suspect]
     Dosage: 80 MUG, QD
     Route: 040
     Dates: start: 20120614
  8. PERSANTIN [Concomitant]
     Indication: GLOMERULONEPHRITIS CHRONIC
     Dosage: UNK
     Route: 048
  9. NU-LOTAN [Concomitant]
     Dosage: UNK
     Route: 048
  10. ATELEC [Concomitant]
     Dosage: UNK
     Route: 048

REACTIONS (1)
  - Sudden hearing loss [Recovering/Resolving]
